FAERS Safety Report 7970541-9 (Version None)
Quarter: 2011Q4

REPORT INFORMATION
  Report Type: 
  Country: None (occurrence: None)
  Receive Date: 20111212
  Receipt Date: 20111201
  Transmission Date: 20120403
  Serious: Yes (Hospitalization, Other)
  Sender: FDA-Public Use
  Company Number: US-BAYER-2011-009934

PATIENT
  Age: 27 Year
  Sex: Female
  Weight: 58.957 kg

DRUGS (2)
  1. PREVACID [Concomitant]
     Dosage: 30 MG, UNK
  2. YAZ [Suspect]
     Indication: ORAL CONTRACEPTION
     Dosage: UNK
     Dates: start: 20060101, end: 20100101

REACTIONS (5)
  - CHOLELITHIASIS [None]
  - SCAR [None]
  - PAIN [None]
  - BILIARY COLIC [None]
  - EMOTIONAL DISTRESS [None]
